FAERS Safety Report 9785876 (Version 3)
Quarter: 2014Q2

REPORT INFORMATION
  Report Type: Report from Study
  Country: US (occurrence: US)
  Receive Date: 20131227
  Receipt Date: 20140521
  Transmission Date: 20141212
  Serious: Yes (Hospitalization, Other)
  Sender: FDA-Public Use
  Company Number: US-ALEXION PHARMACEUTICALS INC.-A201304254

PATIENT
  Sex: 0

DRUGS (9)
  1. SOLIRIS [Suspect]
     Indication: PAROXYSMAL NOCTURNAL HAEMOGLOBINURIA
     Dosage: 900 MG, Q2W
     Route: 042
     Dates: start: 20100820
  2. COUMADIN                           /00014802/ [Concomitant]
     Indication: ANTICOAGULANT THERAPY
     Dosage: UNK
     Route: 065
     Dates: start: 20060101
  3. CYTOXAN [Concomitant]
     Indication: SYSTEMIC LUPUS ERYTHEMATOSUS
     Dosage: UNK
     Route: 065
     Dates: start: 20100101
  4. DILAUDID [Concomitant]
     Indication: ANALGESIC THERAPY
     Dosage: 4 MG, TABS PRN
     Route: 048
     Dates: start: 20100101
  5. DILAUDID [Concomitant]
     Indication: SYSTEMIC LUPUS ERYTHEMATOSUS
  6. MS CONTIN [Concomitant]
     Indication: ANALGESIC THERAPY
     Dosage: UNK
     Route: 065
     Dates: start: 20100101
  7. MS CONTIN [Concomitant]
     Indication: SYSTEMIC LUPUS ERYTHEMATOSUS
  8. PREDNISONE [Concomitant]
     Indication: STEROID THERAPY
     Dosage: 10 MG, QD
     Dates: start: 20100610
  9. IMURAN                             /00001501/ [Concomitant]
     Indication: SYSTEMIC LUPUS ERYTHEMATOSUS
     Dosage: UNK
     Route: 065
     Dates: start: 20111115

REACTIONS (6)
  - Neoplasm progression [Unknown]
  - Deafness [Unknown]
  - Renal impairment [Recovering/Resolving]
  - Dizziness [Unknown]
  - Tinnitus [Unknown]
  - Vertigo [Unknown]
